FAERS Safety Report 6973522-7 (Version None)
Quarter: 2010Q3

REPORT INFORMATION
  Report Type: 
  Country: None (occurrence: None)
  Receive Date: 20100909
  Receipt Date: 20100831
  Transmission Date: 20110219
  Serious: Yes (Other)
  Sender: FDA-Public Use
  Company Number: BR-GENENTECH-298473

PATIENT
  Sex: Female
  Weight: 64 kg

DRUGS (4)
  1. RITUXIMAB [Suspect]
     Indication: RHEUMATOID ARTHRITIS
     Dosage: 500 MG/ML, Q15D
     Route: 042
     Dates: start: 20090919, end: 20090922
  2. RITUXIMAB [Suspect]
     Dosage: UNK
     Route: 042
     Dates: start: 20080301, end: 20080301
  3. TOCILIZUMAB [Suspect]
     Indication: RHEUMATOID ARTHRITIS
     Dosage: 8 MG/KG, Q4W
  4. PROFENID [Concomitant]
     Indication: PAIN
     Dosage: 100 UNK, UNK

REACTIONS (5)
  - DRUG INEFFECTIVE [None]
  - DRY SKIN [None]
  - ILL-DEFINED DISORDER [None]
  - MUSCLE ATROPHY [None]
  - PAIN IN EXTREMITY [None]
